FAERS Safety Report 21286433 (Version 1)
Quarter: 2022Q3

REPORT INFORMATION
  Report Type: Spontaneous
  Country: JP (occurrence: JP)
  Receive Date: 20220902
  Receipt Date: 20220902
  Transmission Date: 20221026
  Serious: Yes (Other)
  Sender: FDA-Public Use
  Company Number: JP-PFIZER INC-PV202200052999

PATIENT
  Age: 83 Year
  Sex: Female

DRUGS (6)
  1. INLYTA [Suspect]
     Active Substance: AXITINIB
     Dosage: 10 MG, CYCLIC
  2. INLYTA [Suspect]
     Active Substance: AXITINIB
     Dosage: 6 MG, CYCLIC
  3. INLYTA [Suspect]
     Active Substance: AXITINIB
     Dosage: 4 MG, CYCLIC
  4. BAVENCIO [Suspect]
     Active Substance: AVELUMAB
     Dosage: 10 MG/KG, CYCLIC
  5. BAVENCIO [Suspect]
     Active Substance: AVELUMAB
     Dosage: 10 MG/KG, CYCLIC
  6. BAVENCIO [Suspect]
     Active Substance: AVELUMAB
     Dosage: 10 MG/KG, CYCLIC

REACTIONS (5)
  - Malaise [Unknown]
  - Hepatic function abnormal [Recovered/Resolved]
  - Taste disorder [Unknown]
  - Palmar-plantar erythrodysaesthesia syndrome [Unknown]
  - Stomatitis [Unknown]
